FAERS Safety Report 20390432 (Version 1)
Quarter: 2022Q1

REPORT INFORMATION
  Report Type: Spontaneous
  Country: US (occurrence: US)
  Receive Date: 20220128
  Receipt Date: 20220128
  Transmission Date: 20220424
  Serious: Yes (Other)
  Sender: FDA-Public Use
  Company Number: US-SA-SAC20220127000678

PATIENT
  Sex: Female

DRUGS (1)
  1. DUPIXENT [Suspect]
     Active Substance: DUPILUMAB
     Indication: Dermatitis atopic
     Dosage: UNK
     Route: 058
     Dates: start: 202107

REACTIONS (5)
  - Embolism [Unknown]
  - Sepsis [Unknown]
  - Immunoglobulins increased [Unknown]
  - Unevaluable event [Unknown]
  - Condition aggravated [Unknown]
